FAERS Safety Report 6937811-4 (Version None)
Quarter: 2010Q3

REPORT INFORMATION
  Report Type: 
  Country: None (occurrence: None)
  Receive Date: 20100824
  Receipt Date: 20100714
  Transmission Date: 20110219
  Serious: Yes (Hospitalization)
  Sender: FDA-Public Use
  Company Number: NL-TEVA-245262ISR

PATIENT
  Age: 79 Year
  Sex: Female

DRUGS (2)
  1. SOTALOL HCL [Suspect]
     Indication: ARRHYTHMIA
     Route: 048
  2. SOTALOL HCL [Suspect]
     Route: 048

REACTIONS (4)
  - BRADYCARDIA [None]
  - HYPOTENSION [None]
  - LOWER LIMB FRACTURE [None]
  - OVERDOSE [None]
